FAERS Safety Report 6804606-1 (Version None)
Quarter: 2010Q2

REPORT INFORMATION
  Report Type: 
  Country: None (occurrence: None)
  Receive Date: 20100628
  Receipt Date: 20071101
  Transmission Date: 20101027
  Serious: No
  Sender: FDA-Public Use
  Company Number: US-PFIZER INC-2007012564

PATIENT
  Sex: Female
  Weight: 58.06 kg

DRUGS (5)
  1. PROCARDIA [Suspect]
     Indication: HYPERTENSION
     Dates: start: 20060801, end: 20070101
  2. TIAZAC [Suspect]
     Indication: HYPERTENSION
     Dates: start: 20000101
  3. ULTRAM [Concomitant]
  4. TRAMADOL HCL [Concomitant]
  5. LORAZEPAM [Concomitant]

REACTIONS (2)
  - EXTRASYSTOLES [None]
  - PALPITATIONS [None]
